FAERS Safety Report 6758699-0 (Version None)
Quarter: 2010Q2

REPORT INFORMATION
  Report Type: 
  Country: None (occurrence: None)
  Receive Date: 20100607
  Receipt Date: 20100601
  Transmission Date: 20101027
  Serious: Yes (Other)
  Sender: FDA-Public Use
  Company Number: US-BAYER-201024511NA

PATIENT
  Sex: Female

DRUGS (1)
  1. YASMIN [Suspect]
     Indication: DRUG USE FOR UNKNOWN INDICATION
     Dosage: IT WAS MENTIONED IN OCT-2007, BUT ALSO ON IN THE BEGINNING IN 2007
     Route: 048
     Dates: start: 20070101

REACTIONS (1)
  - GALLBLADDER INJURY [None]
